FAERS Safety Report 11511224 (Version 3)
Quarter: 2015Q4

REPORT INFORMATION
  Report Type: Spontaneous
  Country: US (occurrence: US)
  Receive Date: 20150915
  Receipt Date: 20151020
  Transmission Date: 20160304
  Serious: Yes (Other)
  Sender: FDA-Public Use
  Company Number: CHPA2015US010515

PATIENT
  Age: 78 Year
  Sex: Female

DRUGS (13)
  1. GAS-X EXTRA STRENGTH [Suspect]
     Active Substance: DIMETHICONE
     Indication: ABDOMINAL DISTENSION
  2. GAS-X EXTRA STRENGTH SOFTGELS [Suspect]
     Active Substance: DIMETHICONE
     Indication: ABDOMINAL DISTENSION
  3. BABY ASPIRIN [Concomitant]
     Active Substance: ASPIRIN
     Indication: PRODUCT USED FOR UNKNOWN INDICATION
     Route: 065
  4. GAS-X EXTRA STRENGTH [Suspect]
     Active Substance: DIMETHICONE
     Indication: EPIGASTRIC DISCOMFORT
  5. GAS-X EXTRA STRENGTH SOFTGELS [Suspect]
     Active Substance: DIMETHICONE
     Indication: DYSPEPSIA
  6. GAS-X EXTRA STRENGTH [Suspect]
     Active Substance: DIMETHICONE
     Indication: FLATULENCE
     Dosage: 1 TO 3 DF, UNK
     Route: 048
  7. GAS-X EXTRA STRENGTH [Suspect]
     Active Substance: DIMETHICONE
     Indication: DYSPEPSIA
  8. GAS-X EXTRA STRENGTH SOFTGELS [Suspect]
     Active Substance: DIMETHICONE
     Indication: EPIGASTRIC DISCOMFORT
  9. GAS-X EXTRA STRENGTH [Suspect]
     Active Substance: DIMETHICONE
     Indication: ERUCTATION
  10. LISINOPRIL. [Concomitant]
     Active Substance: LISINOPRIL
     Indication: BLOOD PRESSURE MEASUREMENT
     Dosage: 25 MG, UNK
     Route: 065
  11. METOPROLOL [Concomitant]
     Active Substance: METOPROLOL
     Indication: BLOOD PRESSURE MEASUREMENT
     Dosage: 50 MG, UNK
     Route: 065
  12. GAS-X EXTRA STRENGTH SOFTGELS [Suspect]
     Active Substance: DIMETHICONE
     Indication: FLATULENCE
     Dosage: UNK
     Route: 048
  13. GAS-X EXTRA STRENGTH SOFTGELS [Suspect]
     Active Substance: DIMETHICONE
     Indication: ERUCTATION

REACTIONS (5)
  - Wrong technique in product usage process [Unknown]
  - Renal cancer [Unknown]
  - Product use issue [Unknown]
  - Incorrect dose administered [Unknown]
  - Abdominal pain upper [Recovered/Resolved]
